FAERS Safety Report 9734743 (Version 1)
Quarter: 2013Q4

REPORT INFORMATION
  Report Type: Spontaneous
  Country: GB (occurrence: GB)
  Receive Date: 20131206
  Receipt Date: 20131206
  Transmission Date: 20140711
  Serious: Yes (Disabling)
  Sender: FDA-Public Use
  Company Number: GB-JNJFOC-20131200430

PATIENT
  Age: 44 Year
  Sex: Male

DRUGS (2)
  1. XARELTO [Suspect]
     Indication: PRODUCT USED FOR UNKNOWN INDICATION
     Route: 048
     Dates: start: 201311
  2. PROMAX [Concomitant]
     Route: 065

REACTIONS (4)
  - Gait disturbance [Unknown]
  - Neuralgia [Unknown]
  - Myalgia [Unknown]
  - Sensory disturbance [Unknown]
